FAERS Safety Report 21422813 (Version 1)
Quarter: 2022Q4

REPORT INFORMATION
  Report Type: Spontaneous
  Country: US (occurrence: None)
  Receive Date: 20221006
  Receipt Date: 20221006
  Transmission Date: 20230113
  Serious: Yes (unspecified)
  Sender: FDA-Public Use
  Company Number: None

PATIENT
  Age: 57 Year
  Sex: Female
  Weight: 67.5 kg

DRUGS (7)
  1. LINZESS [Suspect]
     Active Substance: LINACLOTIDE
     Indication: Constipation
     Dosage: OTHER STRENGTH : MCG;?
     Route: 048
     Dates: start: 20220829, end: 20221004
  2. AJOVY [Concomitant]
     Active Substance: FREMANEZUMAB-VFRM
  3. VITAMINS [Concomitant]
     Active Substance: VITAMINS
  4. RIBOFLAVIN [Concomitant]
     Active Substance: RIBOFLAVIN
  5. MAGNESIUM [Concomitant]
     Active Substance: MAGNESIUM
  6. CALCIUM CITRATE [Concomitant]
     Active Substance: CALCIUM CITRATE
  7. OMEPRAZOLE [Concomitant]
     Active Substance: OMEPRAZOLE

REACTIONS (2)
  - Vertigo [None]
  - Nystagmus [None]

NARRATIVE: CASE EVENT DATE: 20221004
